FAERS Safety Report 5711415-3 (Version None)
Quarter: 2008Q2

REPORT INFORMATION
  Report Type: 
  Country: None (occurrence: None)
  Receive Date: 20080421
  Receipt Date: 20080410
  Transmission Date: 20081010
  Serious: Yes (Disabling)
  Sender: FDA-Public Use
  Company Number: GB-JNJFOC-20080402692

PATIENT
  Age: 28 Year
  Sex: Female

DRUGS (5)
  1. OFLOXACIN [Suspect]
     Indication: PELVIC INFLAMMATORY DISEASE
     Route: 048
  2. DOXYCYCLINE [Concomitant]
     Indication: PELVIC INFLAMMATORY DISEASE
     Route: 048
  3. IBUPROFEN [Concomitant]
     Route: 048
  4. METRONIDAZOLE HCL [Concomitant]
     Indication: PELVIC INFLAMMATORY DISEASE
     Route: 048
  5. MULTI-VITAMIN [Concomitant]
     Route: 065

REACTIONS (3)
  - ANXIETY [None]
  - PANIC ATTACK [None]
  - TEARFULNESS [None]
